FAERS Safety Report 10524741 (Version 1)
Quarter: 2014Q4

REPORT INFORMATION
  Report Type: Spontaneous
  Country: IN (occurrence: IN)
  Receive Date: 20141017
  Receipt Date: 20141017
  Transmission Date: 20150528
  Serious: Yes (Other)
  Sender: FDA-Public Use
  Company Number: IN-WATSON-2014-21942

PATIENT
  Age: 36 Year
  Sex: Female

DRUGS (2)
  1. FLUOXETINE [Suspect]
     Active Substance: FLUOXETINE\FLUOXETINE HYDROCHLORIDE
     Indication: BACK PAIN
     Dosage: 20 MG, UNKNOWN
     Route: 065
  2. TRAMADOL-PARACETAMOL (UNKNOWN) [Suspect]
     Active Substance: ACETAMINOPHEN\TRAMADOL
     Indication: BACK PAIN
     Dosage: UNK, 37.5/325MG TWICE A DAY
     Route: 065

REACTIONS (2)
  - Headache [Recovered/Resolved]
  - Serotonin syndrome [Recovered/Resolved]
